FAERS Safety Report 5209280-6 (Version None)
Quarter: 2007Q1

REPORT INFORMATION
  Report Type: 
  Country: None (occurrence: None)
  Receive Date: 20070111
  Receipt Date: 20061228
  Transmission Date: 20070707
  Serious: Yes (Death)
  Sender: FDA-Public Use
  Company Number: 2006S1011918

PATIENT
  Age: 4 Year
  Sex: Female

DRUGS (5)
  1. CLONIDINE HCL [Suspect]
     Indication: ATTENTION DEFICIT/HYPERACTIVITY DISORDER
     Dosage: SEE IMAGE
     Route: 048
     Dates: end: 20061213
  2. OPIOIDS [Suspect]
  3. VALPROIC ACID [Concomitant]
  4. CHLORPHENIRAMINE MALEATE [Concomitant]
  5. DEXTROMETHORPHAN [Concomitant]

REACTIONS (5)
  - DEPRESSED LEVEL OF CONSCIOUSNESS [None]
  - FOAMING AT MOUTH [None]
  - OVERDOSE [None]
  - PULSE ABSENT [None]
  - VICTIM OF HOMICIDE [None]
